FAERS Safety Report 9301376 (Version 1)
Quarter: 2013Q2

REPORT INFORMATION
  Report Type: Spontaneous
  Country: AU (occurrence: AU)
  Receive Date: 20130521
  Receipt Date: 20130521
  Transmission Date: 20140414
  Serious: Yes (Other)
  Sender: FDA-Public Use
  Company Number: AU-ELI_LILLY_AND_COMPANY-AU201305003945

PATIENT
  Sex: Female

DRUGS (2)
  1. ALIMTA [Suspect]
     Indication: SMALL CELL LUNG CANCER
     Dosage: 715 MG, UNKNOWN
     Route: 065
  2. ALIMTA [Suspect]
     Dosage: 510 MG, UNKNOWN
     Route: 065

REACTIONS (3)
  - Hip fracture [Unknown]
  - Thrombocytopenia [Unknown]
  - Off label use [Unknown]
